FAERS Safety Report 11381105 (Version 1)
Quarter: 2015Q3

REPORT INFORMATION
  Report Type: Spontaneous
  Country: GB (occurrence: GB)
  Receive Date: 20150814
  Receipt Date: 20150814
  Transmission Date: 20151125
  Serious: Yes (Hospitalization)
  Sender: FDA-Public Use
  Company Number: GB-TEVA-585201ACC

PATIENT
  Age: 29 Year
  Sex: Male

DRUGS (8)
  1. CETIRIZINE [Concomitant]
     Active Substance: CETIRIZINE HYDROCHLORIDE
     Dosage: 10 MILLIGRAM DAILY; AT NIGHT.
  2. CLOBETASOL [Concomitant]
     Active Substance: CLOBETASOL
     Dosage: 2 DOSAGE FORMS DAILY;
  3. CETRABEN EMOLLIENT CREAM [Concomitant]
  4. NUTRITIONAL SUPPLEMENT [Concomitant]
     Active Substance: DIETARY SUPPLEMENT
     Dosage: 1 DF WEEKLY
  5. CO-DYDRAMOL [Concomitant]
     Active Substance: ACETAMINOPHEN\DIHYDROCODEINE
     Dosage: AS REQUIRED
  6. NAPROXEN SODIUM. [Concomitant]
     Active Substance: NAPROXEN SODIUM
     Dosage: 500 MG, TWICE DAILY AS NECESSARY
  7. DOVOBET [Concomitant]
     Active Substance: BETAMETHASONE\CALCIPOTRIENE
     Dosage: 1 DOSAGE FORMS DAILY;
  8. METHOTREXATE [Suspect]
     Active Substance: METHOTREXATE
     Indication: GUTTATE PSORIASIS
     Dosage: 10 MG WEEKLY
     Route: 048
     Dates: start: 20150707, end: 20150724

REACTIONS (5)
  - Rash pruritic [Recovering/Resolving]
  - Skin plaque [Recovering/Resolving]
  - Oropharyngeal pain [Recovering/Resolving]
  - Skin burning sensation [Recovering/Resolving]
  - Malaise [Recovering/Resolving]

NARRATIVE: CASE EVENT DATE: 20150708
